FAERS Safety Report 20813315 (Version 1)
Quarter: 2022Q2

REPORT INFORMATION
  Report Type: Spontaneous
  Country: US (occurrence: None)
  Receive Date: 20220510
  Receipt Date: 20220510
  Transmission Date: 20220721
  Serious: Yes (Hospitalization)
  Sender: FDA-Public Use
  Company Number: None

PATIENT
  Sex: Male

DRUGS (2)
  1. LUMAKRAS [Suspect]
     Active Substance: SOTORASIB
     Indication: Lung neoplasm malignant
     Dosage: 960MG DAILY ORAL?
     Route: 048
     Dates: start: 202203
  2. LUMAKRAS [Suspect]
     Active Substance: SOTORASIB
     Indication: Metastases to central nervous system

REACTIONS (2)
  - Aphasia [None]
  - Liver function test increased [None]
